FAERS Safety Report 6945209-8 (Version None)
Quarter: 2010Q3

REPORT INFORMATION
  Report Type: 
  Country: None (occurrence: None)
  Receive Date: 20100827
  Receipt Date: 20100819
  Transmission Date: 20110219
  Serious: Yes (Life-Threatening, Other)
  Sender: FDA-Public Use
  Company Number: US-AMGEN-QUU386176

PATIENT
  Sex: Female

DRUGS (7)
  1. NPLATE [Suspect]
     Indication: IDIOPATHIC THROMBOCYTOPENIC PURPURA
     Dates: start: 20090305, end: 20090824
  2. CORTICOSTEROID NOS [Concomitant]
     Dates: start: 20090210
  3. COUMADIN [Concomitant]
  4. DANAZOL [Concomitant]
     Route: 048
  5. ACIPHEX [Concomitant]
  6. TRAMADOL HCL [Concomitant]
  7. IRON SULFATETHIAMIN COMPOUND TAB [Concomitant]

REACTIONS (5)
  - DEEP VEIN THROMBOSIS [None]
  - DRUG INEFFECTIVE [None]
  - OSTEONECROSIS [None]
  - THERAPEUTIC RESPONSE DECREASED [None]
  - THROMBOCYTOPENIA [None]
